FAERS Safety Report 4962434-6 (Version None)
Quarter: 2006Q2

REPORT INFORMATION
  Report Type: 
  Country: None (occurrence: None)
  Receive Date: 20060404
  Receipt Date: 20011004
  Transmission Date: 20061013
  Serious: Yes (Hospitalization)
  Sender: FDA-Public Use
  Company Number: DE-AMGEN-01100144

PATIENT
  Sex: Female

DRUGS (11)
  1. ENBREL [Suspect]
     Indication: JUVENILE ARTHRITIS
     Route: 058
  2. ENBREL [Suspect]
  3. CARDIAC MEDICATION NOS [Concomitant]
     Route: 065
  4. FOLIC ACID [Concomitant]
     Route: 065
  5. SULFAMETHOXAZOLE + TRIMETHOPRIM [Concomitant]
     Route: 065
  6. PREDNISONE [Concomitant]
     Route: 065
  7. OMEPRAZOLE [Concomitant]
     Route: 065
  8. NIFEDIPINE [Concomitant]
     Route: 065
  9. INDOMETHACIN [Concomitant]
     Route: 065
  10. BETAXOLOL [Concomitant]
     Route: 065
  11. METHOTREXATE [Concomitant]
     Route: 065

REACTIONS (1)
  - SKIN ULCER [None]
